FAERS Safety Report 6701066-6 (Version None)
Quarter: 2010Q2

REPORT INFORMATION
  Report Type: 
  Country: None (occurrence: None)
  Receive Date: 20100428
  Receipt Date: 20100414
  Transmission Date: 20101027
  Serious: Yes (Hospitalization)
  Sender: FDA-Public Use
  Company Number: ES-ELI_LILLY_AND_COMPANY-ES201004003742

PATIENT
  Sex: Female
  Weight: 88 kg

DRUGS (5)
  1. FORTEO [Suspect]
     Indication: OSTEOPOROSIS
     Dosage: 20 UG, DAILY (1/D)
     Route: 058
     Dates: start: 20090814
  2. EUTHYRAL [Concomitant]
     Indication: THYROID DISORDER
     Dosage: 75 MG, DAILY (1/D)
     Route: 048
  3. EFFERALGAN                         /00020001/ [Concomitant]
     Indication: PAIN MANAGEMENT
     Dosage: 1 G, EVERY 8 HRS
     Route: 048
  4. ENANTYUM [Concomitant]
     Indication: PAIN MANAGEMENT
     Dosage: 25 MG, EVERY 8 HRS
     Route: 065
  5. CLEXANE [Concomitant]
     Dosage: UNK, DAILY (1/D)
     Route: 058
     Dates: start: 20100323

REACTIONS (1)
  - PELVIC FRACTURE [None]
